FAERS Safety Report 6015761-8 (Version None)
Quarter: 2008Q4

REPORT INFORMATION
  Report Type: 
  Country: None (occurrence: None)
  Receive Date: 20081222
  Receipt Date: 20080714
  Transmission Date: 20090506
  Serious: No
  Sender: FDA-Public Use
  Company Number: US-BAYER-200813089BCC

PATIENT
  Sex: Female

DRUGS (1)
  1. ALEVE [Suspect]
     Indication: HEADACHE
     Route: 048

REACTIONS (5)
  - BLISTER [None]
  - PAIN OF SKIN [None]
  - RASH [None]
  - SKIN FISSURES [None]
  - SUNBURN [None]
